FAERS Safety Report 8758734 (Version 1)
Quarter: 2012Q4

REPORT INFORMATION
  Report Type: 
  Country: TR (occurrence: TR)
  Receive Date: 20120829
  Receipt Date: 20120829
  Transmission Date: 20130627
  Serious: Yes (Hospitalization)
  Sender: FDA-Public Use
  Company Number: TR-MYLANLABS-2012S1016971

PATIENT
  Age: 25 Year
  Sex: Male

DRUGS (4)
  1. VENLAFAXINE [Suspect]
     Indication: MAJOR DEPRESSION
     Dosage: 150mg qd
     Route: 065
  2. OLANZAPINE [Suspect]
     Indication: MAJOR DEPRESSION
     Dosage: 5mg qd
     Route: 065
  3. SERTRALINE [Suspect]
     Indication: MAJOR DEPRESSION
     Dosage: 50mg qd
     Route: 065
  4. MIRTAZAPINE [Suspect]
     Indication: MAJOR DEPRESSION
     Dosage: 30mg qd
     Route: 065

REACTIONS (1)
  - Sinus arrhythmia [Recovered/Resolved]
